FAERS Safety Report 5086939-5 (Version None)
Quarter: 2006Q3

REPORT INFORMATION
  Report Type: 
  Country: None (occurrence: None)
  Receive Date: 20060818
  Receipt Date: 20060803
  Transmission Date: 20061208
  Serious: Yes (Hospitalization)
  Sender: FDA-Public Use
  Company Number: 2006097690

PATIENT
  Age: 64 Year
  Sex: Male
  Weight: 79.3795 kg

DRUGS (2)
  1. CELEBREX [Suspect]
     Indication: ARTHRITIS
     Dosage: 3 IN 1 D
  2. BEXTRA [Suspect]
     Indication: ARTHRITIS
     Dosage: 60 MG (20 MG, 3 IN 1 D)

REACTIONS (4)
  - CEREBROVASCULAR ACCIDENT [None]
  - SKIN EXFOLIATION [None]
  - SKIN REACTION [None]
  - SKIN SWELLING [None]
